FAERS Safety Report 4495544-0 (Version None)
Quarter: 2004Q4

REPORT INFORMATION
  Report Type: 
  Country: None (occurrence: None)
  Receive Date: 20041104
  Receipt Date: 20041021
  Transmission Date: 20050328
  Serious: Yes (Hospitalization)
  Sender: FDA-Public Use
  Company Number: GB-JNJFOC-20041006239

PATIENT
  Sex: Male

DRUGS (11)
  1. REMICADE [Suspect]
     Indication: RHEUMATOID ARTHRITIS
     Route: 042
  2. VIOXX [Concomitant]
  3. ATENOLOL [Concomitant]
  4. ASPIRIN [Concomitant]
  5. PREDNISOLONE [Concomitant]
  6. CALCICHEW [Concomitant]
  7. FOLIC ACID [Concomitant]
  8. METHOTREXATE [Concomitant]
  9. HYDROXYCHLOROQUINE SULFATE [Concomitant]
  10. OMEPRAZOLE [Concomitant]
  11. FERROUS SULFATE TAB [Concomitant]

REACTIONS (1)
  - CHOLECYSTECTOMY [None]
